FAERS Safety Report 12454357 (Version 2)
Quarter: 2016Q3

REPORT INFORMATION
  Report Type: Spontaneous
  Country: US (occurrence: US)
  Receive Date: 20160610
  Receipt Date: 20160701
  Transmission Date: 20161109
  Serious: Yes (Life-Threatening, Hospitalization, Other)
  Sender: FDA-Public Use
  Company Number: US-SUN PHARMACEUTICAL INDUSTRIES LTD-2016US-118117

PATIENT
  Age: 28 Year
  Sex: Female

DRUGS (6)
  1. LOPERAMIDE [Interacting]
     Active Substance: LOPERAMIDE
     Indication: DRUG WITHDRAWAL SYNDROME
     Dosage: 100 DF, DAILY
     Route: 048
  2. MORPHINE [Concomitant]
     Active Substance: MORPHINE
     Indication: PRODUCT USED FOR UNKNOWN INDICATION
     Dosage: UNK
     Route: 065
  3. CIMETIDINE [Interacting]
     Active Substance: CIMETIDINE
     Indication: DRUG WITHDRAWAL SYNDROME
     Dosage: IN THE FORM OF 200 MG TABLETS
     Route: 048
  4. GABAPENTIN. [Concomitant]
     Active Substance: GABAPENTIN
     Indication: DRUG WITHDRAWAL SYNDROME
     Dosage: UNK
     Route: 065
  5. LOPERAMIDE [Suspect]
     Active Substance: LOPERAMIDE
     Indication: DRUG WITHDRAWAL SYNDROME
     Dosage: 400-600 MG; IN THE FORM OF 2 MG TABLETS
     Route: 048
  6. CIMETIDINE [Interacting]
     Active Substance: CIMETIDINE
     Indication: DRUG WITHDRAWAL SYNDROME
     Dosage: 10 DF, DAILY
     Route: 048

REACTIONS (16)
  - Drug interaction [Recovered/Resolved]
  - Overdose [Recovered/Resolved]
  - Cardiac murmur [Recovered/Resolved]
  - Drug abuse [Recovered/Resolved]
  - Arrhythmia [Recovered/Resolved]
  - Syncope [Recovered/Resolved]
  - Electrocardiogram T wave inversion [Recovered/Resolved]
  - QRS axis abnormal [Recovered/Resolved]
  - Sinus bradycardia [Recovered/Resolved]
  - Self-medication [Recovered/Resolved]
  - Electrocardiogram QRS complex prolonged [Recovered/Resolved]
  - Electrocardiogram QT prolonged [Recovered/Resolved]
  - Torsade de pointes [Recovered/Resolved]
  - Electrocardiogram T wave amplitude decreased [Recovered/Resolved]
  - Myoclonus [Recovered/Resolved]
  - Atrioventricular block first degree [Recovered/Resolved]
